FAERS Safety Report 6710058-2 (Version None)
Quarter: 2010Q2

REPORT INFORMATION
  Report Type: 
  Country: None (occurrence: None)
  Receive Date: 20100504
  Receipt Date: 20100423
  Transmission Date: 20101027
  Serious: Yes (Hospitalization)
  Sender: FDA-Public Use
  Company Number: JP-MERCK-1004USA01441

PATIENT
  Age: 66 Year
  Sex: Male

DRUGS (7)
  1. JANUVIA [Suspect]
     Indication: DIABETES MELLITUS
     Route: 048
     Dates: start: 20100212, end: 20100405
  2. AMARYL [Concomitant]
     Indication: DIABETES MELLITUS
     Route: 048
     Dates: end: 20100401
  3. VOGLIBOSE [Concomitant]
     Indication: DIABETES MELLITUS
     Route: 048
     Dates: end: 20100405
  4. DIGOXIN [Concomitant]
     Indication: ATRIAL FIBRILLATION
     Route: 048
  5. WARFARIN POTASSIUM [Concomitant]
     Indication: HYPERTENSION
     Route: 048
  6. MOHRUS L [Concomitant]
     Indication: ARTHRALGIA
     Route: 061
     Dates: start: 20100312, end: 20100326
  7. CALBLOCK [Concomitant]
     Indication: HYPERTENSION
     Route: 048

REACTIONS (2)
  - ERYTHEMA [None]
  - URTICARIA [None]
